FAERS Safety Report 10011924 (Version 1)
Quarter: 2014Q1

REPORT INFORMATION
  Report Type: Spontaneous
  Country: US (occurrence: None)
  Receive Date: 20140304
  Receipt Date: 20140304
  Transmission Date: 20141002
  Serious: Yes (Hospitalization, Other)
  Sender: FDA-Public Use
  Company Number: RB-58015-2013

PATIENT
  Sex: Male

DRUGS (1)
  1. SUBOXONE (8 MG, 8 MG) [Suspect]
     Indication: DRUG DEPENDENCE
     Route: 060
     Dates: end: 20110411

REACTIONS (5)
  - Joint injury [None]
  - Arthritis infective [None]
  - Malaise [None]
  - Substance abuse [None]
  - Expired drug administered [None]
